FAERS Safety Report 19349706 (Version 1)
Quarter: 2021Q2

REPORT INFORMATION
  Report Type: Spontaneous
  Country: US (occurrence: US)
  Receive Date: 20210528
  Receipt Date: 20210528
  Transmission Date: 20210717
  Serious: Yes (Other)
  Sender: FDA-Public Use
  Company Number: None

PATIENT
  Age: 8 Year
  Sex: Male

DRUGS (28)
  1. SPIRONOLACTONE. [Concomitant]
     Active Substance: SPIRONOLACTONE
  2. FAMOTIDINE. [Concomitant]
     Active Substance: FAMOTIDINE
  3. CHOICEFUL VITAMINS [Concomitant]
  4. XOPENEX NEB SOLN [Concomitant]
  5. CETIRIZINE [Concomitant]
     Active Substance: CETIRIZINE HYDROCHLORIDE
  6. HYDROCORTISONE. [Concomitant]
     Active Substance: HYDROCORTISONE
  7. VITAMIN D3 [Concomitant]
     Active Substance: CHOLECALCIFEROL
  8. WARFARIN [Concomitant]
     Active Substance: WARFARIN
  9. PEDIATRIC PEPTIDE FORMULA [Concomitant]
  10. CALCIUM CARBONATE. [Concomitant]
     Active Substance: CALCIUM CARBONATE
  11. FLINTSTONES GUMMIES [Concomitant]
     Active Substance: VITAMINS
  12. BUDESONIDE. [Concomitant]
     Active Substance: BUDESONIDE
  13. HYDROCORTISONE TOP CREAM [Concomitant]
  14. OPSUMIT [Suspect]
     Active Substance: MACITENTAN
     Indication: PULMONARY ARTERIAL HYPERTENSION
     Route: 048
     Dates: start: 20170428
  15. SILDENAFIL. [Concomitant]
     Active Substance: SILDENAFIL
  16. SYMBICORT HFA [Concomitant]
  17. XOPENEX HFA [Concomitant]
     Active Substance: LEVALBUTEROL TARTRATE
  18. ALVESCO INHL HFA [Concomitant]
  19. FUROSEMIDE. [Concomitant]
     Active Substance: FUROSEMIDE
  20. CYPROHEPTADINE. [Concomitant]
     Active Substance: CYPROHEPTADINE
  21. ALBUTEROL INHL NEB SOLN [Concomitant]
     Active Substance: ALBUTEROL
  22. TREPROSTINIL. [Concomitant]
     Active Substance: TREPROSTINIL
  23. FERROUS SULFATE. [Concomitant]
     Active Substance: FERROUS SULFATE
  24. ASPIRIN. [Concomitant]
     Active Substance: ASPIRIN
  25. FLONASE [Concomitant]
     Active Substance: FLUTICASONE PROPIONATE
  26. ALBUTEROL HFA [Concomitant]
     Active Substance: ALBUTEROL SULFATE
  27. LOSARTAN. [Concomitant]
     Active Substance: LOSARTAN
  28. VIT A + D WHITE?PET?LANOLIN TOP OINT [Concomitant]

REACTIONS (1)
  - Device dislocation [None]

NARRATIVE: CASE EVENT DATE: 20210426
